FAERS Safety Report 25057104 (Version 1)
Quarter: 2025Q1

REPORT INFORMATION
  Report Type: Spontaneous
  Country: US (occurrence: US)
  Receive Date: 20250310
  Receipt Date: 20250310
  Transmission Date: 20250409
  Serious: Yes (Other)
  Sender: STRIDES
  Company Number: US-STRIDES ARCOLAB LIMITED-2024SP016715

PATIENT
  Age: 58 Year
  Sex: Male

DRUGS (2)
  1. TENOFOVIR DISOPROXIL FUMARATE [Suspect]
     Active Substance: TENOFOVIR DISOPROXIL FUMARATE
     Indication: HIV infection
     Route: 065
  2. Dolutegravir and lamivudine [Concomitant]
     Indication: HIV infection
     Route: 065

REACTIONS (3)
  - Bone loss [Recovered/Resolved]
  - Spinal fracture [Recovered/Resolved]
  - Wrist fracture [Recovered/Resolved]
